FAERS Safety Report 8469827-3 (Version None)
Quarter: 2012Q2

REPORT INFORMATION
  Report Type: 
  Country: None (occurrence: None)
  Receive Date: 20120626
  Receipt Date: 20120621
  Transmission Date: 20120825
  Serious: Yes (Other)
  Sender: FDA-Public Use
  Company Number: IT-ABBOTT-12P-083-0927397-00

PATIENT
  Sex: Male

DRUGS (8)
  1. NEORECORMON [Suspect]
     Indication: RENAL FAILURE CHRONIC
     Dosage: WEEKLY
     Route: 042
     Dates: start: 20100901, end: 20120406
  2. FERROUS CARBONATE [Suspect]
     Indication: RENAL FAILURE CHRONIC
     Dosage: WEEKLY
     Route: 042
     Dates: start: 20101101, end: 20120406
  3. ASPIRIN [Concomitant]
     Indication: PRODUCT USED FOR UNKNOWN INDICATION
  4. ZEMPLAR [Suspect]
     Indication: RENAL FAILURE CHRONIC
     Dosage: WEEKLY
     Route: 042
     Dates: start: 20101101, end: 20120406
  5. ENOXAPARIN SODIUM [Concomitant]
     Indication: PRODUCT USED FOR UNKNOWN INDICATION
     Route: 058
  6. ATORVASTATIN CALCIUM [Concomitant]
     Indication: PRODUCT USED FOR UNKNOWN INDICATION
     Route: 048
  7. PREFOLIC [Concomitant]
     Indication: PRODUCT USED FOR UNKNOWN INDICATION
     Route: 030
  8. OMEPRAZOLE [Concomitant]
     Indication: PRODUCT USED FOR UNKNOWN INDICATION

REACTIONS (3)
  - TREMOR [None]
  - DYSPNOEA [None]
  - RALES [None]
